FAERS Safety Report 7902139-2 (Version None)
Quarter: 2011Q4

REPORT INFORMATION
  Report Type: 
  Country: None (occurrence: None)
  Receive Date: 20111108
  Receipt Date: 20111031
  Transmission Date: 20120403
  Serious: Yes (Other)
  Sender: FDA-Public Use
  Company Number: US-BAYER-2011-105673

PATIENT
  Sex: Female

DRUGS (4)
  1. YAZ [Suspect]
     Indication: MENSTRUAL CYCLE MANAGEMENT
  2. YAZ [Suspect]
     Indication: CONTRACEPTION
     Dosage: UNK
     Dates: start: 20060901, end: 20080101
  3. YASMIN [Suspect]
     Indication: CONTRACEPTION
     Dosage: UNK
     Dates: start: 20060901, end: 20080101
  4. YASMIN [Suspect]
     Indication: MENSTRUAL CYCLE MANAGEMENT

REACTIONS (4)
  - INJURY [None]
  - EMOTIONAL DISTRESS [None]
  - PAIN [None]
  - GALLBLADDER DISORDER [None]
